FAERS Safety Report 4970083-9 (Version None)
Quarter: 2006Q2

REPORT INFORMATION
  Report Type: 
  Country: None (occurrence: None)
  Receive Date: 20060406
  Receipt Date: 20060120
  Transmission Date: 20061013
  Serious: Yes (Hospitalization, Other)
  Sender: FDA-Public Use
  Company Number: 2006027723

PATIENT
  Age: 60 Year
  Sex: Female
  Weight: 83.0083 kg

DRUGS (4)
  1. BEXTRA [Suspect]
     Indication: OSTEOARTHRITIS
     Dosage: 20 MG (20 MG, 1 IN 1 D) ORAL
     Route: 048
     Dates: start: 20020801
  2. HYDROCODONE W/ACETMINOPHEN (HYDROCODONE BITARTRATE, PARACETAMOL) [Concomitant]
  3. LEXAPRO [Concomitant]
  4. SKELAXIN (METALAXONE) [Concomitant]

REACTIONS (10)
  - ABDOMINAL PAIN UPPER [None]
  - BLISTER [None]
  - CEREBROVASCULAR ACCIDENT [None]
  - EYE SWELLING [None]
  - GASTROINTESTINAL HAEMORRHAGE [None]
  - HERPES ZOSTER [None]
  - MOUTH ULCERATION [None]
  - PAIN [None]
  - SWELLING FACE [None]
  - SYNCOPE [None]
